FAERS Safety Report 12987687 (Version 1)
Quarter: 2016Q4

REPORT INFORMATION
  Report Type: Spontaneous
  Country: US (occurrence: US)
  Receive Date: 20161130
  Receipt Date: 20161130
  Transmission Date: 20170207
  Serious: Yes (Hospitalization)
  Sender: FDA-Public Use
  Company Number: None

PATIENT
  Age: 79 Year
  Sex: Female
  Weight: 77.11 kg

DRUGS (15)
  1. HYDROXYUREA. [Suspect]
     Active Substance: HYDROXYUREA
     Indication: PLATELET COUNT INCREASED
     Dosage: HYDROXYUREA - 1 PILL - PO - 3X PER WEEK - THEN DAILY
     Route: 048
     Dates: start: 20160715, end: 20161025
  2. LEVOTHYROXINE. [Concomitant]
     Active Substance: LEVOTHYROXINE
  3. FERROUS SULFATE. [Concomitant]
     Active Substance: FERROUS SULFATE
  4. ASPIRIN. [Concomitant]
     Active Substance: ASPIRIN
  5. TRAMADOL. [Concomitant]
     Active Substance: TRAMADOL
  6. GLUCOSAMINE [Concomitant]
     Active Substance: GLUCOSAMINE
  7. SIMVASTATIN. [Concomitant]
     Active Substance: SIMVASTATIN
  8. IBUPROFEN. [Concomitant]
     Active Substance: IBUPROFEN
  9. MULTI VITAMIN [Concomitant]
     Active Substance: VITAMINS
  10. VALSARTAN. [Concomitant]
     Active Substance: VALSARTAN
  11. CALCIUM [Concomitant]
     Active Substance: CALCIUM
  12. LATANOPROST. [Concomitant]
     Active Substance: LATANOPROST
  13. HYDROCHLORTHIAZIDE [Concomitant]
     Active Substance: HYDROCHLOROTHIAZIDE
  14. ATHENOL ANAGRELIDE [Concomitant]
  15. VITAMIN E [Concomitant]
     Active Substance: .ALPHA.-TOCOPHEROL

REACTIONS (6)
  - Fatigue [None]
  - Asthenia [None]
  - Dehydration [None]
  - Decreased appetite [None]
  - Blood potassium decreased [None]
  - Urinary tract infection [None]

NARRATIVE: CASE EVENT DATE: 20161023
